FAERS Safety Report 14301431 (Version 1)
Quarter: 2017Q4

REPORT INFORMATION
  Report Type: Other
  Country: FR (occurrence: FR)
  Receive Date: 20171219
  Receipt Date: 20171219
  Transmission Date: 20180321
  Serious: Yes (Hospitalization, Other)
  Sender: FDA-Public Use
  Company Number: FR-TAKEDA-2017TUS026194

PATIENT
  Age: 59 Year
  Sex: Male
  Weight: 60 kg

DRUGS (2)
  1. ICLUSIG [Suspect]
     Active Substance: PONATINIB
     Indication: ACUTE LYMPHOCYTIC LEUKAEMIA
     Dosage: UNK
     Route: 048
  2. BLINCYTO [Suspect]
     Active Substance: BLINATUMOMAB
     Indication: ACUTE LYMPHOCYTIC LEUKAEMIA
     Dosage: UNK
     Route: 042

REACTIONS (7)
  - Dysmetria [Recovered/Resolved]
  - Infection [Recovered/Resolved]
  - Epstein-Barr virus infection [Not Recovered/Not Resolved]
  - Hypogammaglobulinaemia [Recovered/Resolved]
  - Cytomegalovirus infection [Not Recovered/Not Resolved]
  - Tremor [Recovered/Resolved]
  - Pyrexia [Recovered/Resolved]

NARRATIVE: CASE EVENT DATE: 2017
